FAERS Safety Report 19186500 (Version 2)
Quarter: 2021Q2

REPORT INFORMATION
  Report Type: Report from Study
  Country: MX (occurrence: MX)
  Receive Date: 20210427
  Receipt Date: 20210502
  Transmission Date: 20210717
  Serious: Yes (Life-Threatening, Hospitalization, Other)
  Sender: FDA-Public Use
  Company Number: NVSC2021MX094408

PATIENT
  Age: 62 Year
  Sex: Male
  Weight: 70 kg

DRUGS (3)
  1. EXFORGE HCT [Suspect]
     Active Substance: AMLODIPINE BESYLATE\HYDROCHLOROTHIAZIDE\VALSARTAN
     Indication: BLOOD PRESSURE INCREASED
     Dosage: 1/2 (10/320/25) QD
     Route: 048
     Dates: start: 20201228
  2. EXFORGE HCT [Suspect]
     Active Substance: AMLODIPINE BESYLATE\HYDROCHLOROTHIAZIDE\VALSARTAN
     Indication: HYPERTENSION
     Dosage: 1 DF, QD
     Route: 048
     Dates: start: 2011
  3. INSULIN [Concomitant]
     Active Substance: INSULIN NOS
     Indication: DIABETES MELLITUS
     Dosage: UNK, BID 16 UNITS (100 UI/ML) (IN THE MORNING AND AT NIGHT)
     Route: 058

REACTIONS (9)
  - Off label use [Unknown]
  - Speech disorder [Recovering/Resolving]
  - Eating disorder [Recovering/Resolving]
  - COVID-19 [Recovered/Resolved with Sequelae]
  - Monoplegia [Recovering/Resolving]
  - Memory impairment [Recovering/Resolving]
  - Visual impairment [Recovering/Resolving]
  - Hypotension [Unknown]
  - Asthenia [Unknown]

NARRATIVE: CASE EVENT DATE: 20201205
